FAERS Safety Report 10514683 (Version 1)
Quarter: 2014Q4

REPORT INFORMATION
  Report Type: Spontaneous
  Country: DK (occurrence: DE)
  Receive Date: 20141013
  Receipt Date: 20141013
  Transmission Date: 20150528
  Serious: Yes (Congenital Anomaly)
  Sender: FDA-Public Use
  Company Number: DE-FRI-1000071470

PATIENT
  Age: 0 Day
  Sex: Male
  Weight: 2.5 kg

DRUGS (8)
  1. TRAMADOLOR [Suspect]
     Active Substance: TRAMADOL
     Dosage: 200 MG
     Route: 064
  2. AMOXICILLIN. [Concomitant]
     Active Substance: AMOXICILLIN
     Dosage: 2000 MG
     Route: 064
  3. CITALOPRAM [Suspect]
     Active Substance: CITALOPRAM HYDROBROMIDE
     Dosage: 2.5 MG
     Route: 064
  4. PARACETAMOL [Concomitant]
     Active Substance: ACETAMINOPHEN
     Dosage: 3 TO 4 TIMES (DOSAGE AND TRIMESTER UNKNOWN)
     Route: 064
  5. VITAMIN B6 } PYRIDOXIN [Concomitant]
     Route: 064
  6. VOMACUR [Concomitant]
     Dosage: 50 MG
     Route: 064
  7. FEMIBION [Concomitant]
     Active Substance: VITAMINS
     Route: 064
  8. CEFUROXIM [Concomitant]
     Active Substance: CEFUROXIME
     Dosage: DOSAGE UNKNOWN
     Route: 064

REACTIONS (5)
  - Low birth weight baby [Unknown]
  - Syndactyly [Unknown]
  - Small for dates baby [Unknown]
  - Foetal heart rate deceleration abnormality [Unknown]
  - Foetal exposure during pregnancy [Unknown]

NARRATIVE: CASE EVENT DATE: 20130806
